FAERS Safety Report 8712808 (Version 4)
Quarter: 2013Q3

REPORT INFORMATION
  Report Type: Spontaneous
  Country: JP (occurrence: JP)
  Receive Date: 20120808
  Receipt Date: 20130903
  Transmission Date: 20140515
  Serious: Yes (Life-Threatening, Hospitalization, Other)
  Sender: FDA-Public Use
  Company Number: JP-BAYER-2012-023600

PATIENT
  Age: 75 Year
  Sex: Male
  Weight: 42 kg

DRUGS (3)
  1. NEXAVAR [Suspect]
     Indication: RENAL CELL CARCINOMA
     Dosage: 200 MG, QD
     Route: 048
     Dates: start: 20120208, end: 20120307
  2. NEXAVAR [Suspect]
     Indication: RENAL CELL CARCINOMA
     Dosage: 200 MG, QD
     Route: 048
     Dates: start: 20120409, end: 20120712
  3. AMLODIN [Concomitant]
     Indication: HYPERTENSION
     Dosage: DAILY DOSE 5 MG
     Route: 048
     Dates: start: 20120523

REACTIONS (5)
  - Acute myocardial infarction [Recovered/Resolved]
  - Palpitations [Recovered/Resolved]
  - Renal failure acute [Not Recovered/Not Resolved]
  - Pleurisy [Recovering/Resolving]
  - Pericarditis [Recovering/Resolving]
